FAERS Safety Report 5211764-1 (Version None)
Quarter: 2007Q1

REPORT INFORMATION
  Report Type: 
  Country: None (occurrence: None)
  Receive Date: 20070117
  Receipt Date: 20070117
  Transmission Date: 20070707
  Serious: Yes (Hospitalization)
  Sender: FDA-Public Use
  Company Number: None

PATIENT
  Age: 47 Year
  Sex: Female

DRUGS (12)
  1. IMMUNE GLOBULIN (HUMAN) [Suspect]
     Indication: STIFF-MAN SYNDROME
     Dosage: 30 GRAM DAILY IV DRIP    2 DOSES
     Route: 041
     Dates: start: 20070109
  2. IMMUNE GLOBULIN (HUMAN) [Suspect]
     Indication: STIFF-MAN SYNDROME
     Dosage: 30 GRAM DAILY IV DRIP    2 DOSES
     Route: 041
     Dates: start: 20070110
  3. CLONAZEPAM [Concomitant]
  4. SIMVASTATIN [Concomitant]
  5. FOLIC ACID [Concomitant]
  6. MIDODRINE [Concomitant]
  7. FLUOXETINE [Concomitant]
  8. PANTOPRAZOLE SODIUM [Concomitant]
  9. HEPARIN SUBCUTANEOUS [Concomitant]
  10. TOPIRAMATE [Concomitant]
  11. BACLOFEN [Concomitant]
  12. ASPIRIN [Concomitant]

REACTIONS (1)
  - NEUTROPENIA [None]
